FAERS Safety Report 7277879-1 (Version None)
Quarter: 2011Q1

REPORT INFORMATION
  Report Type: 
  Country: None (occurrence: None)
  Receive Date: 20110207
  Receipt Date: 20110128
  Transmission Date: 20110831
  Serious: Yes (Hospitalization)
  Sender: FDA-Public Use
  Company Number: US-ASTRAZENECA-2011SE05409

PATIENT
  Age: 43 Year
  Sex: Female

DRUGS (3)
  1. SEROQUEL XR [Suspect]
     Indication: BIPOLAR DISORDER
     Route: 048
  2. TEGRETOL [Concomitant]
  3. SEROQUEL XR [Suspect]
     Dosage: SEVERAL DOSE CHANGES
     Route: 048

REACTIONS (3)
  - THYROID DISORDER [None]
  - HYSTERECTOMY [None]
  - ANXIETY [None]
